FAERS Safety Report 20479550 (Version 1)
Quarter: 2022Q1

REPORT INFORMATION
  Report Type: Spontaneous
  Country: DE (occurrence: DE)
  Receive Date: 20220216
  Receipt Date: 20220216
  Transmission Date: 20220424
  Serious: Yes (Death)
  Sender: FDA-Public Use
  Company Number: DE-ELI_LILLY_AND_COMPANY-DE202201008730

PATIENT
  Age: 30 Year

DRUGS (6)
  1. RAMUCIRUMAB [Suspect]
     Active Substance: RAMUCIRUMAB
     Indication: Metastatic gastric cancer
     Dosage: UNK, UNKNOWN
     Route: 065
     Dates: start: 202005, end: 202010
  2. PACLITAXEL [Suspect]
     Active Substance: PACLITAXEL
     Indication: Metastatic gastric cancer
     Dosage: UNK, UNKNOWN
     Route: 065
     Dates: start: 202005, end: 202010
  3. IRINOTECAN [Concomitant]
     Active Substance: IRINOTECAN
     Indication: Product used for unknown indication
     Dosage: UNK, UNKNOWN
     Route: 065
     Dates: start: 202011, end: 202103
  4. LEUCOVORIN [Concomitant]
     Active Substance: LEUCOVORIN
     Indication: Product used for unknown indication
     Dosage: UNK, UNKNOWN
     Route: 065
     Dates: start: 202011, end: 202103
  5. FLUOROURACIL [Concomitant]
     Active Substance: FLUOROURACIL
     Indication: Product used for unknown indication
     Dosage: UNK, UNKNOWN
     Route: 065
     Dates: start: 202011, end: 202103
  6. PEMBROLIZUMAB [Concomitant]
     Active Substance: PEMBROLIZUMAB
     Indication: Product used for unknown indication
     Dosage: UNK, UNKNOWN
     Route: 065
     Dates: start: 202106

REACTIONS (4)
  - Metastases to peritoneum [Fatal]
  - Ascites [Unknown]
  - Vomiting [Recovering/Resolving]
  - Ileus [Unknown]

NARRATIVE: CASE EVENT DATE: 20201001
